FAERS Safety Report 9444278 (Version 2)
Quarter: 2013Q4

REPORT INFORMATION
  Report Type: Report from Study
  Country: US (occurrence: US)
  Receive Date: 20130807
  Receipt Date: 20131003
  Transmission Date: 20140711
  Serious: Yes (Death, Other)
  Sender: FDA-Public Use
  Company Number: PHEH2013US016650

PATIENT
  Sex: Male

DRUGS (2)
  1. ZOMETA [Suspect]
     Indication: ILL-DEFINED DISORDER
     Dosage: 4 MG PER 5 ML VIAL, ONCE A MONTH BY PHYSICIAN
     Route: 042
     Dates: start: 20120717
  2. GLEEVEC [Suspect]
     Indication: ILL-DEFINED DISORDER
     Dosage: 1 DF, DAILY
     Route: 048
     Dates: start: 20121127

REACTIONS (2)
  - Disease progression [Fatal]
  - Thymoma malignant [Unknown]
